FAERS Safety Report 20704475 (Version 1)
Quarter: 2022Q2

REPORT INFORMATION
  Report Type: Spontaneous
  Country: IT (occurrence: IT)
  Receive Date: 20220413
  Receipt Date: 20220413
  Transmission Date: 20220721
  Serious: Yes (Hospitalization, Other)
  Sender: FDA-Public Use
  Company Number: IT-PFM-2021-12310

PATIENT
  Age: 47 Year
  Sex: Male

DRUGS (4)
  1. ENOXAPARIN [Suspect]
     Active Substance: ENOXAPARIN
     Indication: Pneumonia
     Dosage: UNK
     Route: 065
  2. AZITHROMYCIN [Interacting]
     Active Substance: AZITHROMYCIN
     Indication: Pneumonia
     Dosage: UNK
     Route: 065
  3. HYDROXYCHLOROQUINE [Interacting]
     Active Substance: HYDROXYCHLOROQUINE
     Indication: Pneumonia
     Dosage: UNK
     Route: 065
  4. TOCILIZUMAB [Suspect]
     Active Substance: TOCILIZUMAB
     Indication: Interleukin therapy
     Dosage: 8 MILLIGRAM/KILOGRAM
     Route: 065

REACTIONS (8)
  - Blood osmolarity increased [Recovered/Resolved]
  - Hyponatraemia [Recovered/Resolved]
  - Automatism [Recovered/Resolved]
  - Abnormal behaviour [Recovered/Resolved]
  - Inappropriate antidiuretic hormone secretion [Recovered/Resolved]
  - Impaired work ability [Recovered/Resolved]
  - Guillain-Barre syndrome [Recovered/Resolved]
  - Drug interaction [Unknown]
